FAERS Safety Report 9156332 (Version 1)
Quarter: 2013Q1

REPORT INFORMATION
  Report Type: Report from Study
  Country: US (occurrence: US)
  Receive Date: 20130312
  Receipt Date: 20130312
  Transmission Date: 20140127
  Serious: No
  Sender: FDA-Public Use
  Company Number: US-009507513-1303USA004279

PATIENT
  Sex: Female

DRUGS (7)
  1. RIBAVIRIN [Suspect]
     Indication: CHRONIC HEPATITIS C
     Dosage: 1200 MG DAILY DIVIDED DOSES
  2. BOCEPREVIR [Suspect]
     Indication: CHRONIC HEPATITIS C
     Dosage: 4TABS, TID
  3. PEGINTERFERON ALFA-2A [Suspect]
     Indication: CHRONIC HEPATITIS C
     Dosage: 180 MICROGRAM, QW
     Dates: start: 20120427
  4. LAMOTRIGINE [Concomitant]
  5. HYDROXYZINE HYDROCHLORIDE [Concomitant]
  6. CYMBALTA [Concomitant]
  7. TRAZODONE HYDROCHLORIDE [Concomitant]

REACTIONS (1)
  - Ear pain [Unknown]
